FAERS Safety Report 24558627 (Version 1)
Quarter: 2024Q4

REPORT INFORMATION
  Report Type: Spontaneous
  Country: CN (occurrence: CN)
  Receive Date: 20241029
  Receipt Date: 20241029
  Transmission Date: 20250115
  Serious: Yes (Other)
  Sender: RANBAXY
  Company Number: CN-SUN PHARMACEUTICAL INDUSTRIES LTD-2024R1-475642

PATIENT
  Age: 61 Year
  Sex: Female

DRUGS (2)
  1. CLONAZEPAM [Suspect]
     Active Substance: CLONAZEPAM
     Indication: Major depression
     Dosage: 2 MILLIGRAM
     Route: 065
  2. QUETIAPINE [Suspect]
     Active Substance: QUETIAPINE
     Indication: Major depression
     Dosage: 0.3 GRAM
     Route: 065

REACTIONS (1)
  - Hypomania [Unknown]
